FAERS Safety Report 7949847 (Version 5)
Quarter: 2015Q4

REPORT INFORMATION
  Report Type: Spontaneous
  Country: US (occurrence: US)
  Receive Date: 20110518
  Receipt Date: 20151105
  Transmission Date: 20160305
  Serious: Yes (Hospitalization, Other)
  Sender: FDA-Public Use
  Company Number: US-ASTRAZENECA-2010SE52479

PATIENT
  Age: 40 Year
  Sex: Female

DRUGS (5)
  1. NEXIUM [Suspect]
     Active Substance: ESOMEPRAZOLE MAGNESIUM
     Indication: GASTROOESOPHAGEAL REFLUX DISEASE
     Route: 048
     Dates: start: 2005, end: 20140503
  2. NEXIUM [Suspect]
     Active Substance: ESOMEPRAZOLE MAGNESIUM
     Indication: ULCER
     Route: 048
  3. ZOMIG [Suspect]
     Active Substance: ZOLMITRIPTAN
     Route: 048
  4. NEXIUM [Suspect]
     Active Substance: ESOMEPRAZOLE MAGNESIUM
     Indication: ULCER
     Route: 048
     Dates: start: 2005, end: 20140503
  5. NEXIUM [Suspect]
     Active Substance: ESOMEPRAZOLE MAGNESIUM
     Indication: GASTROOESOPHAGEAL REFLUX DISEASE
     Route: 048

REACTIONS (10)
  - Ulcer [Unknown]
  - Drug hypersensitivity [Unknown]
  - Off label use [Unknown]
  - Vomiting [Unknown]
  - Gun shot wound [Unknown]
  - Pain [Unknown]
  - Injury [Unknown]
  - Intentional product misuse [Unknown]
  - Drug dose omission [Unknown]
  - Dyspepsia [Unknown]
